FAERS Safety Report 17798217 (Version 1)
Quarter: 2020Q2

REPORT INFORMATION
  Report Type: Spontaneous
  Country: US (occurrence: US)
  Receive Date: 20200517
  Receipt Date: 20200517
  Transmission Date: 20200714
  Serious: Yes (Other)
  Sender: FDA-Public Use
  Company Number: None

PATIENT
  Age: 70 Year
  Sex: Male

DRUGS (1)
  1. GABAPENTIN 400MG CAPS [Suspect]
     Active Substance: GABAPENTIN

REACTIONS (2)
  - Product quality issue [None]
  - Temperature regulation disorder [None]

NARRATIVE: CASE EVENT DATE: 20200516
